FAERS Safety Report 4692397-2 (Version None)
Quarter: 2005Q2

REPORT INFORMATION
  Report Type: 
  Country: None (occurrence: None)
  Receive Date: 20050616
  Receipt Date: 20050601
  Transmission Date: 20051028
  Serious: Yes (Hospitalization)
  Sender: FDA-Public Use
  Company Number: US_0506118185

PATIENT
  Age: 81 Year
  Sex: Male
  Weight: 60 kg

DRUGS (8)
  1. FORTEO [Suspect]
     Indication: OSTEOPOROSIS
     Dosage: 20 UG/1 DAY
     Dates: start: 20050428
  2. ANCORON (AMIODARONE HYDROCHLORIDE) [Concomitant]
  3. CAPTOPRIL [Concomitant]
  4. BROMOPRIDE [Concomitant]
  5. METAMUCIL (PLANTAGO OVATA) [Concomitant]
  6. PANTOPRAZOLE [Concomitant]
  7. NOVALGINA (METAMIZOLE SODIUM) [Concomitant]
  8. ACETYLCYSTEINE [Concomitant]

REACTIONS (2)
  - BACK PAIN [None]
  - PHARMACEUTICAL PRODUCT COMPLAINT [None]
